FAERS Safety Report 16424439 (Version 3)
Quarter: 2025Q4

REPORT INFORMATION
  Report Type: Report from Study
  Country: US (occurrence: US)
  Receive Date: 20190613
  Receipt Date: 20251112
  Transmission Date: 20260117
  Serious: No
  Sender: NOVARTIS
  Company Number: PHEH2019US023138

PATIENT
  Age: 60 Year
  Sex: Female

DRUGS (2)
  1. MAYZENT [Suspect]
     Active Substance: SIPONIMOD
     Indication: Multiple sclerosis
     Dosage: 2 MG, QD
     Route: 048
     Dates: start: 20190516
  2. MAYZENT [Suspect]
     Active Substance: SIPONIMOD
     Indication: Hypothyroidism
     Dosage: 2 MG, QD
     Route: 048
     Dates: start: 20190520

REACTIONS (7)
  - Drug hypersensitivity [Not Recovered/Not Resolved]
  - Rash [Not Recovered/Not Resolved]
  - Fatigue [Not Recovered/Not Resolved]
  - Eye pain [Not Recovered/Not Resolved]
  - Diarrhoea [Not Recovered/Not Resolved]
  - Urticaria [Unknown]
  - Product use in unapproved indication [Unknown]

NARRATIVE: CASE EVENT DATE: 20190516
